FAERS Safety Report 13541156 (Version 2)
Quarter: 2017Q3

REPORT INFORMATION
  Report Type: Spontaneous
  Country: US (occurrence: US)
  Receive Date: 20170512
  Receipt Date: 20170721
  Transmission Date: 20171127
  Serious: No
  Sender: FDA-Public Use
  Company Number: US-TEVA-766273ACC

PATIENT
  Age: 46 Year
  Sex: Female

DRUGS (8)
  1. DICLOFENAC [Concomitant]
     Active Substance: DICLOFENAC
  2. VITAMIN D3 [Concomitant]
     Active Substance: CHOLECALCIFEROL
  3. VITAMIN C [Concomitant]
     Active Substance: ASCORBIC ACID
  4. AMITIZA [Concomitant]
     Active Substance: LUBIPROSTONE
  5. BIOTIN [Concomitant]
     Active Substance: BIOTIN
  6. ASPIRIN. [Concomitant]
     Active Substance: ASPIRIN
  7. COPAXONE [Suspect]
     Active Substance: GLATIRAMER ACETATE
     Indication: MULTIPLE SCLEROSIS
     Route: 058
     Dates: start: 20170308
  8. ESTROPIPATE. [Concomitant]
     Active Substance: ESTROPIPATE

REACTIONS (3)
  - Tremor [Not Recovered/Not Resolved]
  - Depression [Not Recovered/Not Resolved]
  - Fatigue [Not Recovered/Not Resolved]

NARRATIVE: CASE EVENT DATE: 20170429
